FAERS Safety Report 8417024-X (Version None)
Quarter: 2012Q2

REPORT INFORMATION
  Report Type: 
  Country: None (occurrence: None)
  Receive Date: 20120606
  Receipt Date: 20120531
  Transmission Date: 20120825
  Serious: Yes (Death)
  Sender: FDA-Public Use
  Company Number: BE-AMGEN-BELSP2012034113

PATIENT
  Sex: Male
  Weight: 65 kg

DRUGS (16)
  1. LANTUS [Concomitant]
     Indication: HYPOGLYCAEMIA
     Dosage: UNK
  2. ACTRAPID                           /00646001/ [Concomitant]
  3. CORDARONE [Concomitant]
     Dosage: 200 MG, QD
  4. STEOVIT D3 [Concomitant]
     Dosage: 1000 MG, QD
  5. ALDACTONE [Concomitant]
     Dosage: 50 MG, 2 TIMES/WK
  6. BUDENOFALK [Concomitant]
     Indication: COLITIS ULCERATIVE
     Dosage: 3 MG, QD
  7. INSULIN [Concomitant]
     Indication: TYPE 2 DIABETES MELLITUS
  8. PROLIA [Suspect]
     Indication: PROSTATE CANCER
     Dosage: 60 MG, Q6MO
     Route: 058
     Dates: start: 20120501
  9. AMLODIPINE BESYLATE [Concomitant]
     Dosage: 5 MG, UNK
  10. CORUNO [Concomitant]
     Dosage: 16 MG, UNK
  11. ASPIRIN [Concomitant]
     Dosage: 80 MG, UNK
  12. ACETAMINOPHEN [Concomitant]
     Dosage: 1 G, TID
  13. TRAMADOL HCL [Concomitant]
  14. NESTROLAN [Concomitant]
     Dosage: 100 MG, UNK
  15. MEDROL [Concomitant]
     Indication: COLITIS ULCERATIVE
     Dosage: 2 MG, UNK
  16. PRAVASTATIN [Concomitant]
     Dosage: 20 MG, QD

REACTIONS (3)
  - DEATH [None]
  - BRONCHITIS [None]
  - PYREXIA [None]
